FAERS Safety Report 9290713 (Version 3)
Quarter: 2013Q2

REPORT INFORMATION
  Report Type: Report from Study
  Country: US (occurrence: US)
  Receive Date: 20130515
  Receipt Date: 20130522
  Transmission Date: 20140414
  Serious: Yes (Hospitalization)
  Sender: FDA-Public Use
  Company Number: US-AMGEN-USACT2013034195

PATIENT
  Age: 78 Year
  Sex: Female
  Weight: 65.9 kg

DRUGS (10)
  1. DENOSUMAB [Suspect]
     Indication: OSTEOPOROSIS POSTMENOPAUSAL
     Dosage: 60 MG, Q6WK
     Route: 058
     Dates: start: 20091109, end: 20110511
  2. TERIPARATIDE [Concomitant]
     Indication: OSTEOPOROSIS POSTMENOPAUSAL
     Dosage: 20 MUG, QD
     Route: 058
     Dates: start: 20111109
  3. VERAPAMIL [Concomitant]
     Dosage: UNK
  4. FENOFIBRATE [Concomitant]
     Dosage: UNK
  5. MIRAPEX [Concomitant]
     Dosage: UNK
  6. OMEPRAZOLE [Concomitant]
     Dosage: UNK
  7. FERROUS SULFATE [Concomitant]
     Dosage: UNK
  8. VITAMIN D [Concomitant]
     Dosage: UNK
  9. ALBUTEROL [Concomitant]
     Dosage: UNK UNK, AS NECESSARY
  10. QVAR [Concomitant]
     Dosage: UNK

REACTIONS (1)
  - Oral candidiasis [Recovered/Resolved]
